FAERS Safety Report 8407624-5 (Version None)
Quarter: 2012Q2

REPORT INFORMATION
  Report Type: 
  Country: None (occurrence: None)
  Receive Date: 20120604
  Receipt Date: 20120528
  Transmission Date: 20120825
  Serious: Yes (Life-Threatening, Hospitalization, Other)
  Sender: FDA-Public Use
  Company Number: JP-CELGENEUS-087-21880-11011577

PATIENT
  Sex: Female

DRUGS (145)
  1. REVLIMID [Suspect]
     Indication: MULTIPLE MYELOMA
     Dosage: 2.5 MILLIGRAM
     Route: 048
     Dates: start: 20101016, end: 20101021
  2. DEXAMETHASONE ACETATE [Suspect]
     Dosage: 4 MILLIGRAM
     Route: 048
     Dates: start: 20101126, end: 20101126
  3. FENTANYL-100 [Suspect]
     Dosage: 50.4 MILLIGRAM
     Route: 062
     Dates: start: 20101125, end: 20101125
  4. VALTREX [Concomitant]
     Dosage: 500 MILLIGRAM
     Route: 048
     Dates: start: 20101211, end: 20101229
  5. ACETAMINOPHEN [Concomitant]
     Dosage: 400 MILLIGRAM
     Route: 048
     Dates: start: 20101022, end: 20101022
  6. ACETAMINOPHEN [Concomitant]
     Dosage: 1800 MILLIGRAM
     Route: 048
     Dates: start: 20110119, end: 20110124
  7. VITAMIN B12 [Concomitant]
     Dosage: 1500 MICROGRAM
     Route: 048
     Dates: start: 20101126, end: 20101209
  8. FUNGIZONE [Concomitant]
     Dosage: 8 MILLILITER
     Route: 048
     Dates: start: 20101126, end: 20101209
  9. GABAPENTIN [Concomitant]
     Dosage: 1200 MILLIGRAM
     Route: 048
     Dates: start: 20101210, end: 20101210
  10. AMITRIPTYLINE HCL [Concomitant]
     Dosage: 15 MILLIGRAM
     Route: 048
     Dates: start: 20101126, end: 20101209
  11. OXINORM [Concomitant]
     Dosage: 400 MILLIGRAM
     Route: 048
     Dates: start: 20101125, end: 20101125
  12. PRIMPERAN TAB [Concomitant]
     Dosage: 20 MILLIGRAM
     Route: 041
     Dates: start: 20101020, end: 20101020
  13. MAGMITT [Concomitant]
     Dosage: 1980 MILLIGRAM
     Route: 048
     Dates: start: 20101210, end: 20101210
  14. SALINE [Concomitant]
     Dosage: 200 MILLILITER
     Route: 041
     Dates: start: 20101024, end: 20101026
  15. HEPARIN NA LOCK [Concomitant]
     Dosage: 100 IU (INTERNATIONAL UNIT)
     Route: 041
     Dates: start: 20101022, end: 20101022
  16. GRAN [Concomitant]
     Dosage: 75 MICROGRAM
     Route: 041
     Dates: start: 20101019, end: 20101019
  17. ZOMETA [Concomitant]
     Dosage: 3 MILLIGRAM
     Route: 041
     Dates: start: 20101021, end: 20101021
  18. MAXIPIME [Concomitant]
     Dosage: 1000 MILLIGRAM
     Route: 041
     Dates: start: 20101022, end: 20101026
  19. TPN ELECTROLYTES IN PLASTIC CONTAINER [Concomitant]
     Indication: PROPHYLAXIS
     Dosage: 1000 MILLIGRAM
     Route: 041
     Dates: start: 20101022, end: 20101023
  20. REVLIMID [Suspect]
     Dosage: 5 MILLIGRAM
     Route: 048
     Dates: start: 20110124, end: 20110124
  21. FENTANYL-100 [Suspect]
     Dosage: 8.4 MILLIGRAM
     Route: 062
     Dates: start: 20101019, end: 20101019
  22. PROTECADIN [Concomitant]
     Dosage: 10 MILLIGRAM
     Route: 048
     Dates: start: 20101211, end: 20101229
  23. BETAMETHASONE [Concomitant]
     Dosage: 1 MILLIGRAM
     Route: 048
     Dates: start: 20101125, end: 20101125
  24. BETAMETHASONE [Concomitant]
     Dosage: .5 MILLIGRAM
     Route: 048
     Dates: start: 20110120, end: 20110125
  25. ACETAMINOPHEN [Concomitant]
     Dosage: 1800 MILLIGRAM
     Route: 048
     Dates: start: 20101103, end: 20101103
  26. ACETAMINOPHEN [Concomitant]
     Dosage: 3600 MILLIGRAM
     Route: 048
     Dates: start: 20101210, end: 20101210
  27. ACETAMINOPHEN [Concomitant]
     Dosage: 1800 MILLIGRAM
     Route: 048
     Dates: start: 20101211, end: 20101229
  28. MUCOSTA [Concomitant]
     Indication: PROPHYLAXIS
     Dosage: 300 MILLIGRAM
     Route: 048
     Dates: start: 20101016, end: 20101103
  29. MUCOSTA [Concomitant]
     Dosage: 600 MILLIGRAM
     Route: 048
     Dates: start: 20101210, end: 20101210
  30. VITAMIN B12 [Concomitant]
     Dosage: 3000 MICROGRAM
     Route: 048
     Dates: start: 20101125, end: 20101125
  31. CLONAZEPAM [Concomitant]
     Dosage: .5 MILLIGRAM
     Route: 048
     Dates: start: 20101124, end: 20101124
  32. CLONAZEPAM [Concomitant]
     Dosage: .5 MILLIGRAM
     Route: 048
     Dates: start: 20110119, end: 20110124
  33. FENTANYL [Concomitant]
     Route: 065
  34. REVLIMID [Suspect]
     Dosage: 5 MILLIGRAM
     Route: 048
     Dates: start: 20101027, end: 20101103
  35. FENTANYL-100 [Suspect]
     Dosage: 8.4 MILLIGRAM
     Route: 062
     Dates: start: 20101016, end: 20101016
  36. FENTANYL-100 [Suspect]
     Dosage: 4.2-8.4 MG
     Route: 062
     Dates: start: 20101022, end: 20101022
  37. FENTANYL-100 [Suspect]
     Dosage: 8.4 MILLIGRAM
     Route: 062
     Dates: start: 20101025, end: 20101025
  38. FENTANYL-100 [Suspect]
     Dosage: 84 MILLIGRAM
     Route: 062
     Dates: start: 20101210, end: 20101210
  39. VALTREX [Concomitant]
     Dosage: 500 MILLIGRAM
     Route: 048
     Dates: start: 20101016, end: 20101103
  40. CEPHARANTHIN [Concomitant]
     Dosage: 60 MILLIGRAM
     Route: 048
     Dates: start: 20101125, end: 20101125
  41. BETAMETHASONE [Concomitant]
     Dosage: .5 MILLIGRAM
     Route: 048
     Dates: start: 20101211, end: 20101229
  42. ACETAMINOPHEN [Concomitant]
     Dosage: 3600 MILLIGRAM
     Route: 048
     Dates: start: 20101125, end: 20101125
  43. ACETAMINOPHEN [Concomitant]
     Dosage: 1800 MILLIGRAM
     Route: 048
     Dates: start: 20101126, end: 20101209
  44. VITAMIN B12 [Concomitant]
     Dosage: 1500 MICROGRAM
     Route: 048
     Dates: start: 20101016, end: 20101103
  45. ENSURE LIQUID [Concomitant]
     Dosage: 250 MILLILITER
     Route: 048
     Dates: start: 20101016, end: 20101102
  46. FUNGIZONE [Concomitant]
     Dosage: 16 MILLILITER
     Route: 048
     Dates: start: 20101125, end: 20101125
  47. REBAMIPIDE [Concomitant]
     Dosage: 300 MILLIGRAM
     Route: 048
     Dates: start: 20110119, end: 20110124
  48. GABAPENTIN [Concomitant]
     Dosage: 1200 MILLIGRAM
     Route: 048
     Dates: start: 20101125, end: 20101125
  49. GABAPENTIN [Concomitant]
     Dosage: 600 MILLIGRAM
     Route: 048
     Dates: start: 20101126, end: 20101209
  50. GABAPENTIN [Concomitant]
     Dosage: 600 MILLIGRAM
     Route: 048
     Dates: start: 20110119, end: 20110124
  51. AMITRIPTYLINE HCL [Concomitant]
     Dosage: 30 MILLIGRAM
     Route: 048
     Dates: start: 20101125, end: 20101125
  52. CLONAZEPAM [Concomitant]
     Dosage: .5 MILLIGRAM
     Route: 048
     Dates: start: 20101101, end: 20101103
  53. CLONAZEPAM [Concomitant]
     Dosage: 1 MILLIGRAM
     Route: 048
     Dates: start: 20101210, end: 20101210
  54. OXINORM [Concomitant]
     Dosage: 50 MILLIGRAM
     Route: 048
     Dates: start: 20101021, end: 20101021
  55. OXINORM [Concomitant]
     Dosage: 50 MILLIGRAM
     Dates: start: 20101027, end: 20101027
  56. SALINE [Concomitant]
     Dosage: 1000 MILLILITER
     Route: 041
     Dates: start: 20101023, end: 20101026
  57. FIRSTCIN [Concomitant]
     Dosage: 1000 MILLIGRAM
     Route: 041
     Dates: start: 20101016, end: 20101018
  58. FLURBIPROFEN [Concomitant]
     Dosage: 50 MILLIGRAM
     Route: 041
     Dates: start: 20101020, end: 20101020
  59. FENTANYL-100 [Suspect]
     Dosage: 16.8 MILLIGRAM
     Route: 062
     Dates: start: 20101028, end: 20101028
  60. VALTREX [Concomitant]
     Dosage: 500 MILLIGRAM
     Route: 048
     Dates: start: 20101126, end: 20101209
  61. CEPHARANTHIN [Concomitant]
     Dosage: 30 MILLIGRAM
     Route: 048
     Dates: start: 20101126, end: 20101209
  62. VITAMIN B12 [Concomitant]
     Dosage: 3000 MICROGRAM
     Route: 048
     Dates: start: 20101210, end: 20101210
  63. ETIZOLAM [Concomitant]
     Dosage: .25 MILLIGRAM
     Route: 048
     Dates: start: 20101023, end: 20101103
  64. MECOBALAMIN [Concomitant]
     Dosage: 1500 MICROGRAM
     Route: 048
     Dates: start: 20110119, end: 20110124
  65. CLONAZEPAM [Concomitant]
     Dosage: 1 MILLIGRAM
     Route: 048
     Dates: start: 20101125, end: 20101125
  66. OXINORM [Concomitant]
     Dosage: 400 MILLIGRAM
     Route: 048
     Dates: start: 20101101, end: 20101101
  67. SALINE [Concomitant]
     Dosage: 20 MILLILITER
     Route: 041
     Dates: start: 20101022, end: 20101022
  68. REVLIMID [Suspect]
     Dosage: 10 MILLIGRAM
     Route: 048
     Dates: start: 20101022, end: 20101024
  69. DEXAMETHASONE ACETATE [Suspect]
     Indication: MULTIPLE MYELOMA
     Dosage: 4 MILLIGRAM
     Route: 048
     Dates: start: 20101119, end: 20101119
  70. DEXAMETHASONE [Suspect]
     Dosage: 13.2 MILLIGRAM
     Route: 041
     Dates: start: 20101029, end: 20101030
  71. PROTECADIN [Concomitant]
     Indication: PROPHYLAXIS
     Dosage: 10 MILLIGRAM
     Route: 048
     Dates: start: 20101016, end: 20101103
  72. PROTECADIN [Concomitant]
     Dosage: 10 MILLIGRAM
     Route: 048
     Dates: start: 20101124, end: 20101124
  73. PROTECADIN [Concomitant]
     Dosage: 20 MILLIGRAM
     Route: 048
     Dates: start: 20101210, end: 20101210
  74. CEPHARANTHIN [Concomitant]
     Dosage: 30 MILLIGRAM
     Route: 048
     Dates: start: 20101124, end: 20101124
  75. MUCOSTA [Concomitant]
     Dosage: 300 MILLIGRAM
     Route: 048
     Dates: start: 20101124, end: 20101124
  76. MUCOSTA [Concomitant]
     Dosage: 600 MILLIGRAM
     Route: 048
     Dates: start: 20101125, end: 20101125
  77. MUCOSTA [Concomitant]
     Dosage: 300 MILLIGRAM
     Route: 048
     Dates: start: 20101126, end: 20101209
  78. MUCOSTA [Concomitant]
     Dosage: 300 MILLIGRAM
     Route: 048
     Dates: start: 20101211, end: 20101229
  79. VITAMIN B12 [Concomitant]
     Dosage: 1500 MICROGRAM
     Route: 048
     Dates: start: 20101124, end: 20101124
  80. FUNGIZONE [Concomitant]
     Dosage: 16 MILLILITER
     Route: 048
     Dates: start: 20101210, end: 20101210
  81. GABAPENTIN [Concomitant]
     Dosage: 600 MILLIGRAM
     Route: 048
     Dates: start: 20101211, end: 20101229
  82. AMITRIPTYLINE HCL [Concomitant]
     Dosage: 30 MILLIGRAM
     Route: 048
     Dates: start: 20101210, end: 20101210
  83. CLONAZEPAM [Concomitant]
     Dosage: .5 MILLIGRAM
     Route: 048
     Dates: start: 20101126, end: 20101209
  84. OXINORM [Concomitant]
     Dosage: 100 MILLIGRAM
     Route: 048
     Dates: start: 20101025, end: 20101025
  85. PRIMPERAN TAB [Concomitant]
     Dosage: 5 MILLIGRAM
     Route: 048
     Dates: start: 20101021, end: 20101021
  86. IBRUPROFEN [Concomitant]
     Dosage: 1000 MILLIGRAM
     Route: 048
     Dates: start: 20101021, end: 20101021
  87. MAGMITT [Concomitant]
     Dosage: 990 MILLIGRAM
     Route: 048
     Dates: start: 20101126, end: 20101209
  88. SALINE [Concomitant]
     Indication: PROPHYLAXIS
     Dosage: 200 MILLILITER
     Route: 041
     Dates: start: 20101016, end: 20101018
  89. SALINE [Concomitant]
     Dosage: 200 MILLILITER
     Route: 041
     Dates: start: 20101021, end: 20101021
  90. SALINE [Concomitant]
     Dosage: 300 MILLILITER
     Route: 041
     Dates: start: 20101022, end: 20101022
  91. HEPARIN NA LOCK [Concomitant]
     Dosage: 200 IU (INTERNATIONAL UNIT)
     Route: 041
     Dates: start: 20101020, end: 20101021
  92. GRAN [Concomitant]
     Dosage: 75 MICROGRAM
     Route: 041
     Dates: start: 20101026, end: 20101026
  93. ATARAX [Concomitant]
     Dosage: 25 MILLIGRAM
     Route: 041
     Dates: start: 20101021, end: 20101021
  94. LAXOBERON [Concomitant]
     Dosage: 10 MILLILITER
     Route: 048
     Dates: start: 20101125, end: 20101125
  95. REVLIMID [Suspect]
     Dosage: 5 MILLIGRAM
     Route: 048
     Dates: start: 20110120, end: 20110122
  96. VALTREX [Concomitant]
     Dosage: 500 MILLIGRAM
     Route: 048
     Dates: start: 20101124, end: 20101124
  97. PROTECADIN [Concomitant]
     Dosage: 10 MILLIGRAM
     Route: 048
     Dates: start: 20101126, end: 20101209
  98. BETAMETHASONE [Concomitant]
     Dosage: .5 MILLIGRAM
     Route: 048
     Dates: start: 20101016, end: 20101103
  99. BETAMETHASONE [Concomitant]
     Dosage: .5 MILLIGRAM
     Route: 048
     Dates: start: 20101124, end: 20101124
  100. ACETAMINOPHEN [Concomitant]
     Dosage: 1800 MILLIGRAM
     Route: 048
     Dates: start: 20101124, end: 20101124
  101. FUNGIZONE [Concomitant]
     Dosage: 8 MILLILITER
     Route: 048
     Dates: start: 20101124, end: 20101124
  102. AMITRIPTYLINE HCL [Concomitant]
     Dosage: 15 MILLIGRAM
     Route: 048
     Dates: start: 20101124, end: 20101124
  103. AMITRIPTYLINE HCL [Concomitant]
     Dosage: 37.5 MILLIGRAM
     Route: 048
     Dates: start: 20110119, end: 20110124
  104. CLONAZEPAM [Concomitant]
     Dosage: .5 MILLIGRAM
     Route: 048
     Dates: start: 20101211, end: 20101229
  105. FALESTACK [Concomitant]
     Indication: PROPHYLAXIS
     Dosage: 30 MILLILITER
     Route: 048
     Dates: start: 20110119, end: 20110124
  106. MAGMITT [Concomitant]
     Dosage: 990 MILLIGRAM
     Route: 048
     Dates: start: 20101028, end: 20101029
  107. MAGMITT [Concomitant]
     Dosage: 1980 MILLIGRAM
     Route: 048
     Dates: start: 20101125, end: 20101125
  108. MAGMITT [Concomitant]
     Dosage: 990 MILLIGRAM
     Route: 048
     Dates: start: 20101211, end: 20101229
  109. SALINE [Concomitant]
     Dosage: 100 MILLILITER
     Route: 041
     Dates: start: 20101029, end: 20101030
  110. FENTANYL-100 [Suspect]
     Route: 062
  111. FENTANYL-100 [Suspect]
     Dosage: 16.8 MILLIGRAM
     Route: 062
     Dates: start: 20101124, end: 20101124
  112. DEXAMETHASONE [Suspect]
     Indication: MULTIPLE MYELOMA
     Dosage: 13.2 MILLIGRAM
     Route: 041
     Dates: start: 20101022, end: 20101023
  113. VALTREX [Concomitant]
     Dosage: 1000 MILLIGRAM
     Route: 048
     Dates: start: 20101210, end: 20101210
  114. PROTECADIN [Concomitant]
     Dosage: 20 MILLIGRAM
     Route: 048
     Dates: start: 20101125, end: 20101125
  115. CEPHARANTHIN [Concomitant]
     Dosage: 30 MILLIGRAM
     Route: 048
     Dates: start: 20101016, end: 20101103
  116. CEPHARANTHIN [Concomitant]
     Dosage: 60 MILLIGRAM
     Route: 048
     Dates: start: 20101210, end: 20101210
  117. CEPHARANTHIN [Concomitant]
     Dosage: 30 MILLIGRAM
     Route: 048
     Dates: start: 20101211, end: 20101229
  118. VITAMIN B12 [Concomitant]
     Dosage: 1500 MICROGRAM
     Route: 048
     Dates: start: 20101211, end: 20101229
  119. FUNGIZONE [Concomitant]
     Dosage: 8 MILLILITER
     Route: 048
     Dates: start: 20101016, end: 20101103
  120. MAGLAX [Concomitant]
     Indication: PROPHYLAXIS
     Dosage: 1980 MILLIGRAM
     Route: 048
     Dates: start: 20110119, end: 20110124
  121. OXINORM [Concomitant]
     Dosage: 160 MILLIGRAM
     Route: 048
     Dates: start: 20101103, end: 20101103
  122. OXINORM [Concomitant]
     Dosage: 200 MILLIGRAM
     Route: 048
     Dates: start: 20101120, end: 20101120
  123. PRIMPERAN TAB [Concomitant]
     Dosage: 10 MILLIGRAM
     Route: 041
     Dates: start: 20101021, end: 20101021
  124. HEPARIN NA LOCK [Concomitant]
     Indication: PROPHYLAXIS
     Dosage: 200 IU (INTERNATIONAL UNIT)
     Route: 041
     Dates: start: 20101016, end: 20101018
  125. MAXIPIME [Concomitant]
     Dosage: 1500 MILLIGRAM
     Route: 041
     Dates: start: 20101021, end: 20101021
  126. REVLIMID [Suspect]
     Dosage: 5 MILLIGRAM
     Route: 048
     Dates: start: 20101113, end: 20101202
  127. REVLIMID [Suspect]
     Dosage: 5 MILLIGRAM
     Route: 048
     Dates: start: 20101210, end: 20101229
  128. DEXAMETHASONE ACETATE [Suspect]
     Dosage: 2.2857 MILLIGRAM
     Route: 048
     Dates: start: 20101201, end: 20101229
  129. FENTANYL-100 [Suspect]
     Dosage: 16.8 MILLIGRAM
     Route: 062
     Dates: start: 20101121, end: 20101121
  130. FENTANYL-100 [Suspect]
     Dosage: 16.8 MILLIGRAM
     Route: 062
     Dates: start: 20110119, end: 20110124
  131. VALTREX [Concomitant]
     Dosage: 1000 MILLIGRAM
     Route: 048
     Dates: start: 20101125, end: 20101125
  132. BETAMETHASONE [Concomitant]
     Dosage: .5 MILLIGRAM
     Route: 048
     Dates: start: 20101126, end: 20101209
  133. BETAMETHASONE [Concomitant]
     Dosage: 1 MILLIGRAM
     Route: 048
     Dates: start: 20101210, end: 20101210
  134. ACETAMINOPHEN [Concomitant]
     Dosage: 300 MILLIGRAM
     Route: 048
     Dates: start: 20101016, end: 20101102
  135. PROCHLORPERAZINE [Concomitant]
     Dosage: 15 MILLIGRAM
     Route: 048
     Dates: start: 20101016, end: 20101102
  136. FUNGIZONE [Concomitant]
     Dosage: 8 MILLILITER
     Route: 048
     Dates: start: 20101211, end: 20101229
  137. GABAPENTIN [Concomitant]
     Dosage: 600 MILLIGRAM
     Route: 048
     Dates: start: 20101124, end: 20101124
  138. AMITRIPTYLINE HCL [Concomitant]
     Dosage: 15 MILLIGRAM
     Route: 048
     Dates: start: 20101211, end: 20101229
  139. OXINORM [Concomitant]
     Dosage: 100 MILLIGRAM
     Route: 048
     Dates: start: 20101028, end: 20101031
  140. MAGMITT [Concomitant]
     Dosage: 750 MILLIGRAM
     Route: 048
     Dates: start: 20101025, end: 20101026
  141. MAGMITT [Concomitant]
     Dosage: 990 MILLIGRAM
     Route: 048
     Dates: start: 20101124, end: 20101124
  142. POTASSIUM CHLORIDE [Concomitant]
     Indication: PROPHYLAXIS
     Dosage: 500 MILLILITER
     Route: 041
     Dates: start: 20101020, end: 20101020
  143. POTASSIUM CHLORIDE [Concomitant]
     Dosage: 1000 MILLILITER
     Route: 041
     Dates: start: 20101021, end: 20101021
  144. SALINE [Concomitant]
     Dosage: 100 MILLILITER
     Route: 041
     Dates: start: 20101020, end: 20101020
  145. SALINE [Concomitant]
     Dosage: 20 MILLILITER
     Route: 041
     Dates: start: 20101020, end: 20101020

REACTIONS (15)
  - C-REACTIVE PROTEIN INCREASED [None]
  - ASPARTATE AMINOTRANSFERASE INCREASED [None]
  - PAIN [None]
  - LIP HAEMORRHAGE [None]
  - RHABDOMYOLYSIS [None]
  - PYELONEPHRITIS [None]
  - NEUTROPENIA [None]
  - HYPERTHERMIA [None]
  - ALTERED STATE OF CONSCIOUSNESS [None]
  - THROMBOCYTOPENIA [None]
  - ALANINE AMINOTRANSFERASE INCREASED [None]
  - HYPERAMYLASAEMIA [None]
  - BLOOD LACTATE DEHYDROGENASE INCREASED [None]
  - PYREXIA [None]
  - PSYCHIATRIC SYMPTOM [None]
